FAERS Safety Report 9120620 (Version 2)
Quarter: 2013Q1

REPORT INFORMATION
  Report Type: Spontaneous
  Country: DE (occurrence: DE)
  Receive Date: 20130226
  Receipt Date: 20130326
  Transmission Date: 20140127
  Serious: Yes (Other)
  Sender: FDA-Public Use
  Company Number: DE-OTSUKA-EU-2013-10045

PATIENT
  Age: 73 Year
  Sex: Male

DRUGS (12)
  1. SAMSCA [Suspect]
     Indication: DIABETES INSIPIDUS
     Dosage: 15 MG MILLIGRAM(S), DAILY DOSE
     Route: 065
     Dates: start: 201207
  2. SAMSCA [Suspect]
     Indication: OFF LABEL USE
     Dosage: 7.5 MG MILLIGRAM(S), DAILY DOSE
  3. SAMSCA [Suspect]
     Dosage: 15 MG MILLIGRAM(S), DAILY DOSE
  4. SCHWEDENTABLETTEN [Concomitant]
     Dosage: 6 DF DOSAGE FORM, DAILY DOSE
     Route: 065
  5. MINIRIN [Concomitant]
     Indication: CEREBROVASCULAR ACCIDENT
     Dosage: 1 DF DOSAGE FORM, DAILY DOSE
     Route: 045
  6. RISPERDAL [Concomitant]
     Indication: DEPRESSION
     Dosage: UNK, UNKNOWN
     Route: 065
  7. TAVOR [Concomitant]
     Indication: DEPRESSION
     Dosage: UNK UNK, UNKNOWN
     Route: 065
  8. ORAL ANTIDIABETICS [Concomitant]
     Indication: TYPE 2 DIABETES MELLITUS
  9. NEUROLEPTICA [Concomitant]
     Indication: AFFECTIVE DISORDER
  10. ANTIHISTAMINES [Concomitant]
     Indication: DERMATITIS ATOPIC
  11. LEVOTHYROXIN [Concomitant]
  12. RAMIPRIL [Concomitant]

REACTIONS (12)
  - Loss of consciousness [Unknown]
  - Syncope [Unknown]
  - Loss of consciousness [Unknown]
  - Blood potassium increased [Unknown]
  - Syncope [Unknown]
  - Polyuria [Unknown]
  - Incorrect drug administration rate [Unknown]
  - Off label use [Unknown]
  - Drug administration error [Unknown]
  - Product quality issue [Unknown]
  - Drug ineffective [Unknown]
  - Wrong technique in drug usage process [Unknown]
